FAERS Safety Report 5367313-0 (Version None)
Quarter: 2007Q2

REPORT INFORMATION
  Report Type: 
  Country: None (occurrence: None)
  Receive Date: 20070622
  Receipt Date: 20060607
  Transmission Date: 20071010
  Serious: No
  Sender: FDA-Public Use
  Company Number: US-ASTRAZENECA-2006UW12187

PATIENT
  Age: 5 Year
  Sex: Male
  Weight: 18.1 kg

DRUGS (3)
  1. PULMICORT RESPULES [Suspect]
     Indication: ASTHMA
     Route: 055
     Dates: start: 20060501
  2. NASONEX [Concomitant]
  3. SINGULAIR [Concomitant]
     Indication: ASTHMA

REACTIONS (3)
  - ANGER [None]
  - HOSTILITY [None]
  - THINKING ABNORMAL [None]
